FAERS Safety Report 10461804 (Version 1)
Quarter: 2014Q3

REPORT INFORMATION
  Report Type: Spontaneous
  Country: US (occurrence: None)
  Receive Date: 20140917
  Receipt Date: 20140917
  Transmission Date: 20150326
  Serious: Yes (Hospitalization)
  Sender: FDA-Public Use
  Company Number: None

PATIENT
  Age: 11 Month
  Sex: Female

DRUGS (4)
  1. HYDROCORTISONE. [Suspect]
     Active Substance: HYDROCORTISONE
     Dosage: PART OF ITT.
     Dates: end: 20140819
  2. LEUCOVORIN CALCIUM. [Suspect]
     Active Substance: LEUCOVORIN CALCIUM
     Dates: end: 20140906
  3. METHOTREXATE [Suspect]
     Active Substance: METHOTREXATE
     Dosage: 5763,5 NG ADMINISTERED IV. 7.5 MG ADMINSTERED AS PART OF ITT
     Dates: end: 20140905
  4. CYTARABINE. [Suspect]
     Active Substance: CYTARABINE
     Dosage: PART OF ITT.
     Dates: end: 20140819

REACTIONS (8)
  - Catheter site inflammation [None]
  - Discomfort [None]
  - Stomatitis [None]
  - Vomiting [None]
  - Haematemesis [None]
  - Infection [None]
  - Incision site inflammation [None]
  - Drooling [None]

NARRATIVE: CASE EVENT DATE: 20140909
